FAERS Safety Report 13451608 (Version 1)
Quarter: 2017Q2

REPORT INFORMATION
  Report Type: Spontaneous
  Country: US (occurrence: US)
  Receive Date: 20170418
  Receipt Date: 20170418
  Transmission Date: 20170830
  Serious: No
  Sender: FDA-Public Use
  Company Number: US-PFIZER INC-2017161931

PATIENT
  Sex: Female

DRUGS (2)
  1. XELJANZ XR [Suspect]
     Active Substance: TOFACITINIB CITRATE
     Indication: ALOPECIA AREATA
     Dosage: 11 MG, UNK
  2. XELJANZ XR [Suspect]
     Active Substance: TOFACITINIB CITRATE
     Indication: ALOPECIA

REACTIONS (12)
  - Pre-existing condition improved [Unknown]
  - Energy increased [Unknown]
  - Product use in unapproved indication [Unknown]
  - Arthralgia [Recovered/Resolved]
  - Coccydynia [Unknown]
  - Joint stiffness [Recovered/Resolved]
  - Therapeutic response unexpected [Unknown]
  - Pain [Unknown]
  - Musculoskeletal stiffness [Unknown]
  - Hyperaesthesia [Unknown]
  - Viral upper respiratory tract infection [Unknown]
  - Pain in extremity [Unknown]
